FAERS Safety Report 7610353-9 (Version None)
Quarter: 2011Q3

REPORT INFORMATION
  Report Type: 
  Country: None (occurrence: None)
  Receive Date: 20110715
  Receipt Date: 20100816
  Transmission Date: 20111222
  Serious: No
  Sender: FDA-Public Use
  Company Number: A0876118A

PATIENT
  Age: 69 Year
  Sex: Female

DRUGS (3)
  1. OLUX [Suspect]
     Indication: ALOPECIA
     Dosage: 1APP TWICE PER DAY
     Route: 061
     Dates: start: 20100526
  2. NIFEDIPINE [Concomitant]
  3. METOPROLOL TARTRATE [Concomitant]

REACTIONS (3)
  - APPLICATION SITE IRRITATION [None]
  - PRODUCT QUALITY ISSUE [None]
  - APPLICATION SITE ERYTHEMA [None]
